FAERS Safety Report 7425205-7 (Version None)
Quarter: 2011Q2

REPORT INFORMATION
  Report Type: 
  Country: None (occurrence: None)
  Receive Date: 20110412
  Receipt Date: 20110330
  Transmission Date: 20111010
  Serious: Yes (Hospitalization)
  Sender: FDA-Public Use
  Company Number: 2010005647

PATIENT
  Age: 74 Year
  Sex: Female
  Weight: 26 kg

DRUGS (12)
  1. ERLOTINIB (ERLOTINIB) (TABLET) (ERLOTINIB) [Suspect]
     Indication: LUNG ADENOCARCINOMA
     Dosage: 150 MG, 1 IN 1 D, ORAL
     Route: 048
     Dates: start: 20090319, end: 20090807
  2. RABEPRAZOLE SODIUM [Concomitant]
  3. LEVOTHYROXINE SODIUM [Concomitant]
  4. BIOFERMIN (BIOFERMIN) [Concomitant]
  5. GASMOTIN (MOSAPRIDE CITRATE) [Concomitant]
  6. METHYCOBAL (MECOBALAMIN) [Concomitant]
  7. FERROMIA (FERROUS CITRATE) [Concomitant]
  8. RINDERON (BETAMETHASONE) [Concomitant]
  9. POLYCARBOPHIL CALCIUM (POLYCARBOPHIL CALCIUM) [Concomitant]
  10. LASIX [Concomitant]
  11. LAC - B (LACTOBACILLUS BIFIDUS, LYOPHILIZED) [Concomitant]
  12. SLOW-K [Concomitant]

REACTIONS (11)
  - IRON DEFICIENCY [None]
  - HYPOKALAEMIA [None]
  - STRESS [None]
  - ERYTHEMA [None]
  - GASTRIC ULCER HAEMORRHAGE [None]
  - ANAEMIA [None]
  - DIARRHOEA [None]
  - RASH [None]
  - CONDITION AGGRAVATED [None]
  - DISEASE PROGRESSION [None]
  - LUNG ADENOCARCINOMA STAGE IV [None]
